FAERS Safety Report 15354763 (Version 1)
Quarter: 2018Q3

REPORT INFORMATION
  Report Type: Spontaneous
  Country: US (occurrence: US)
  Receive Date: 20180906
  Receipt Date: 20180906
  Transmission Date: 20181010
  Serious: No
  Sender: FDA-Public Use
  Company Number: US-CELGENEUS-USA-20180810158

PATIENT
  Sex: Female

DRUGS (12)
  1. THALOMID [Suspect]
     Active Substance: THALIDOMIDE
     Dosage: 250 MILLIGRAM
     Route: 048
     Dates: start: 201109
  2. THALOMID [Suspect]
     Active Substance: THALIDOMIDE
     Dosage: 250 MILLIGRAM
     Route: 048
     Dates: start: 201207
  3. THALOMID [Suspect]
     Active Substance: THALIDOMIDE
     Dosage: 50?250 MILLIGRAM
     Route: 048
     Dates: start: 201308
  4. THALOMID [Suspect]
     Active Substance: THALIDOMIDE
     Indication: PLASMA CELL MYELOMA
     Dosage: 100 MILLIGRAM
     Route: 048
     Dates: start: 200810
  5. THALOMID [Suspect]
     Active Substance: THALIDOMIDE
     Dosage: 250 MILLIGRAM
     Route: 048
     Dates: start: 201312
  6. THALOMID [Suspect]
     Active Substance: THALIDOMIDE
     Dosage: 50?150 MG
     Route: 048
     Dates: start: 201404
  7. THALOMID [Suspect]
     Active Substance: THALIDOMIDE
     Dosage: 50?150 MG
     Route: 048
     Dates: start: 20170731
  8. ASPIRIN. [Concomitant]
     Active Substance: ASPIRIN
     Indication: PRODUCT USED FOR UNKNOWN INDICATION
     Route: 065
  9. THALOMID [Suspect]
     Active Substance: THALIDOMIDE
     Dosage: 250 MILLIGRAM
     Route: 048
     Dates: start: 201211
  10. THALOMID [Suspect]
     Active Substance: THALIDOMIDE
     Dosage: 250 MILLIGRAM
     Route: 048
     Dates: start: 201303
  11. THALOMID [Suspect]
     Active Substance: THALIDOMIDE
     Dosage: 50 MILLIGRAM
     Route: 048
     Dates: start: 201808
  12. THALOMID [Suspect]
     Active Substance: THALIDOMIDE
     Dosage: 100?50 MILLIGRAM
     Route: 048
     Dates: start: 201103

REACTIONS (1)
  - Food poisoning [Recovered/Resolved]
